FAERS Safety Report 5273705-0 (Version None)
Quarter: 2007Q1

REPORT INFORMATION
  Report Type: 
  Country: None (occurrence: None)
  Receive Date: 20070323
  Receipt Date: 20070316
  Transmission Date: 20070707
  Serious: Yes (Other)
  Sender: FDA-Public Use
  Company Number: HQWYE692512MAY05

PATIENT
  Sex: Female
  Weight: 94.4 kg

DRUGS (37)
  1. RAPAMUNE [Suspect]
     Indication: PROPHYLAXIS AGAINST TRANSPLANT REJECTION
     Route: 048
     Dates: start: 20050331, end: 20050331
  2. RAPAMUNE [Suspect]
     Route: 048
     Dates: start: 20050401, end: 20050408
  3. RAPAMUNE [Suspect]
     Route: 048
     Dates: start: 20050409, end: 20050419
  4. RAPAMUNE [Suspect]
     Route: 048
     Dates: start: 20050420, end: 20050428
  5. RAPAMUNE [Suspect]
     Route: 048
     Dates: start: 20050429, end: 20050510
  6. RAPAMUNE [Suspect]
     Route: 048
     Dates: start: 20050511, end: 20050512
  7. RAPAMUNE [Suspect]
     Route: 048
     Dates: start: 20050520, end: 20050608
  8. RAPAMUNE [Suspect]
     Route: 048
     Dates: start: 20050609
  9. CALCIUM CARBONATE [Concomitant]
     Route: 048
     Dates: start: 20050403, end: 20050502
  10. OMEPRAZOLE [Concomitant]
     Route: 042
     Dates: start: 20050319, end: 20050818
  11. SIMVASTATIN [Concomitant]
     Route: 048
     Dates: start: 20050422, end: 20050430
  12. TIROXINA [Concomitant]
     Route: 048
     Dates: start: 20050331
  13. FUROSEMIDE [Concomitant]
     Route: 048
     Dates: start: 20050409, end: 20050415
  14. FUROSEMIDE [Concomitant]
     Route: 048
     Dates: start: 20050416, end: 20050428
  15. AMLODIPINE [Concomitant]
     Route: 048
     Dates: start: 20050420, end: 20050502
  16. CYCLOSPORINE [Concomitant]
     Route: 048
     Dates: start: 20050330, end: 20050502
  17. CYCLOSPORINE [Concomitant]
     Route: 048
     Dates: start: 20050503, end: 20050505
  18. CYCLOSPORINE [Concomitant]
     Route: 048
     Dates: start: 20050506, end: 20050510
  19. CYCLOSPORINE [Concomitant]
     Route: 048
     Dates: start: 20050511, end: 20050513
  20. CYCLOSPORINE [Concomitant]
     Route: 048
     Dates: start: 20050514, end: 20050602
  21. PREDNISONE [Concomitant]
     Route: 048
     Dates: start: 20050402, end: 20050406
  22. PREDNISONE [Concomitant]
     Route: 048
     Dates: start: 20050407, end: 20050414
  23. PREDNISONE [Concomitant]
     Route: 048
     Dates: start: 20050415, end: 20050419
  24. PREDNISONE [Concomitant]
     Route: 048
     Dates: start: 20050420, end: 20050427
  25. PREDNISONE [Concomitant]
     Route: 048
     Dates: start: 20050428, end: 20050429
  26. PREDNISONE [Concomitant]
     Route: 048
     Dates: start: 20050430, end: 20050503
  27. PREDNISONE [Concomitant]
     Route: 048
     Dates: start: 20050505, end: 20050505
  28. PREDNISONE [Concomitant]
     Route: 048
     Dates: start: 20050506, end: 20050507
  29. PREDNISONE [Concomitant]
     Route: 048
     Dates: start: 20050508, end: 20050509
  30. PREDNISONE [Concomitant]
     Route: 048
     Dates: start: 20050510, end: 20050510
  31. PREDNISONE [Concomitant]
     Route: 048
     Dates: start: 20050511, end: 20050517
  32. PREDNISONE [Concomitant]
     Route: 048
     Dates: start: 20050518
  33. BACTRIM [Concomitant]
     Route: 048
     Dates: start: 20050331
  34. EPOGEN [Concomitant]
     Route: 058
     Dates: start: 20050402
  35. PHENOBARBITAL TAB [Concomitant]
     Route: 048
     Dates: start: 20050402
  36. SODIUM BICARBONATE [Concomitant]
     Dosage: 2 SPOONS DAILY
     Route: 048
     Dates: start: 20050407, end: 20050513
  37. CIPROFLOXACIN [Concomitant]
     Route: 042
     Dates: start: 20050427, end: 20050429

REACTIONS (1)
  - NEPHRITIS INTERSTITIAL [None]
